FAERS Safety Report 4482592-X (Version None)
Quarter: 2004Q4

REPORT INFORMATION
  Report Type: 
  Country: None (occurrence: None)
  Receive Date: 20041022
  Receipt Date: 20041015
  Transmission Date: 20050328
  Serious: Yes (Death)
  Sender: FDA-Public Use
  Company Number: US-JNJFOC-20041005180

PATIENT
  Age: 89 Year
  Sex: Male

DRUGS (1)
  1. REMINYL [Suspect]
     Route: 049

REACTIONS (4)
  - FALL [None]
  - GASTROENTERITIS BACTERIAL [None]
  - PNEUMONIA [None]
  - THROMBOSIS [None]
